FAERS Safety Report 7968539-X (Version None)
Quarter: 2011Q4

REPORT INFORMATION
  Report Type: 
  Country: None (occurrence: None)
  Receive Date: 20111209
  Receipt Date: 20111207
  Transmission Date: 20120403
  Serious: Yes (Death)
  Sender: FDA-Public Use
  Company Number: GB-JNJFOC-20111203796

PATIENT
  Age: 67 Year
  Sex: Female

DRUGS (3)
  1. AMITRIPTYLINE HCL [Concomitant]
     Indication: DEPRESSION
     Route: 065
  2. DURAGESIC-100 [Suspect]
     Indication: MUSCULOSKELETAL PAIN
     Route: 062
  3. DURAGESIC-100 [Suspect]
     Indication: NECK PAIN
     Route: 062

REACTIONS (3)
  - PRODUCT QUALITY ISSUE [None]
  - INCORRECT DRUG ADMINISTRATION RATE [None]
  - WRONG TECHNIQUE IN DRUG USAGE PROCESS [None]
